FAERS Safety Report 7128544-2 (Version None)
Quarter: 2010Q4

REPORT INFORMATION
  Report Type: 
  Country: None (occurrence: None)
  Receive Date: 20101112
  Receipt Date: 20101027
  Transmission Date: 20110411
  Serious: Yes (Hospitalization)
  Sender: FDA-Public Use
  Company Number: 2010004638

PATIENT
  Age: 67 Year
  Sex: Female

DRUGS (1)
  1. TARCEVA [Suspect]
     Indication: LUNG NEOPLASM MALIGNANT
     Dosage: (150 MG, DAILY), ORAL
     Route: 048
     Dates: start: 20101011, end: 20101022

REACTIONS (3)
  - ANAEMIA [None]
  - DEHYDRATION [None]
  - DIARRHOEA [None]
